FAERS Safety Report 8664676 (Version 3)
Quarter: 2012Q4

REPORT INFORMATION
  Report Type: Report from Study
  Country: US (occurrence: US)
  Receive Date: 20120713
  Receipt Date: 20120924
  Transmission Date: 20130627
  Serious: Yes (Hospitalization)
  Sender: FDA-Public Use
  Company Number: US-ABBOTT-12P-163-0954701-00

PATIENT
  Age: 65 None
  Sex: Female
  Weight: 108.05 kg

DRUGS (1)
  1. HUMIRA 40 MG/ 0.8 ML PRE-FILLED SYRINGE [Suspect]
     Indication: RHEUMATOID ARTHRITIS
     Route: 058
     Dates: start: 20120126, end: 20120616

REACTIONS (7)
  - Chills [Recovered/Resolved]
  - Pneumonia [Recovered/Resolved]
  - White blood cell count increased [Unknown]
  - Red blood cell sedimentation rate increased [Unknown]
  - Red blood cells urine positive [Unknown]
  - Urine abnormality [Unknown]
  - Urinary casts present [Unknown]
